FAERS Safety Report 20206909 (Version 2)
Quarter: 2021Q4

REPORT INFORMATION
  Report Type: Spontaneous
  Country: TR (occurrence: TR)
  Receive Date: 20211220
  Receipt Date: 20211222
  Transmission Date: 20220303
  Serious: Yes (Hospitalization)
  Sender: FDA-Public Use
  Company Number: TR-KINGPHARMUSA00001-K200901496

PATIENT
  Age: 3 Year
  Sex: Male

DRUGS (1)
  1. BICILLIN L-A [Suspect]
     Active Substance: PENICILLIN G BENZATHINE
     Dosage: UNK
     Route: 030

REACTIONS (8)
  - Embolia cutis medicamentosa [Recovered/Resolved with Sequelae]
  - Erythema [Recovered/Resolved]
  - Ecchymosis [Recovered/Resolved]
  - Pain [Recovered/Resolved]
  - Feeling cold [Recovered/Resolved]
  - Skin necrosis [Recovered/Resolved with Sequelae]
  - Oedema [Recovered/Resolved with Sequelae]
  - Lividity [Recovered/Resolved]
